FAERS Safety Report 25631912 (Version 1)
Quarter: 2025Q3

REPORT INFORMATION
  Report Type: Report from Study
  Country: US (occurrence: US)
  Receive Date: 20250801
  Receipt Date: 20250801
  Transmission Date: 20251020
  Serious: Yes (Hospitalization)
  Sender: RECORDATI
  Company Number: US-ORPHANEU-2025005346

PATIENT
  Age: 30 Year
  Sex: Female
  Weight: 97.959 kg

DRUGS (5)
  1. CYSTADANE [Suspect]
     Active Substance: BETAINE
     Indication: Homocystinuria
     Dosage: 20 GRAM, BID (ORAL POWDER)
     Route: 048
     Dates: end: 202507
  2. CYSTADANE [Suspect]
     Active Substance: BETAINE
     Dosage: 20 GRAM, BID (ORAL POWDER)
     Route: 048
     Dates: start: 202507
  3. IBUPROFEN [Concomitant]
     Active Substance: IBUPROFEN
     Indication: Product used for unknown indication
     Route: 048
     Dates: start: 20000101
  4. HYDROXOCOBALAMIN [Concomitant]
     Active Substance: HYDROXOCOBALAMIN
     Indication: Product used for unknown indication
     Dosage: 1000 UNSPECIFIED UNITS,Q 1 MONTH
     Route: 030
     Dates: start: 20071101
  5. FOLIC ACID [Concomitant]
     Active Substance: FOLIC ACID
     Indication: Product used for unknown indication
     Route: 048
     Dates: start: 20170330

REACTIONS (4)
  - Gastroenteritis viral [Recovered/Resolved]
  - Vomiting [Recovered/Resolved]
  - Nausea [Recovered/Resolved]
  - Therapy change [Recovered/Resolved]

NARRATIVE: CASE EVENT DATE: 20250714
